FAERS Safety Report 10815012 (Version 1)
Quarter: 2015Q1

REPORT INFORMATION
  Report Type: Spontaneous
  Country: US (occurrence: US)
  Receive Date: 20150218
  Receipt Date: 20150218
  Transmission Date: 20150721
  Serious: No
  Sender: FDA-Public Use
  Company Number: US-009507513-1502USA004844

PATIENT
  Age: 79 Year
  Sex: Female

DRUGS (2)
  1. ASMANEX [Suspect]
     Active Substance: MOMETASONE FUROATE
     Indication: ASTHMA
     Dosage: 220 MICROGRAM, UNK
     Route: 055
     Dates: start: 200502
  2. CORTICOSTEROIDS (UNSPECIFIED) [Suspect]
     Active Substance: UNSPECIFIED INGREDIENT
     Dosage: HIGH DOSE

REACTIONS (6)
  - Candida infection [Not Recovered/Not Resolved]
  - Candida infection [Recovering/Resolving]
  - Wrong technique in drug usage process [Unknown]
  - Dysphonia [Not Recovered/Not Resolved]
  - Rheumatoid arthritis [Unknown]
  - Cardiac disorder [Unknown]

NARRATIVE: CASE EVENT DATE: 201202
